FAERS Safety Report 11625692 (Version 2)
Quarter: 2015Q4

REPORT INFORMATION
  Report Type: Spontaneous
  Country: US (occurrence: None)
  Receive Date: 20151013
  Receipt Date: 20151021
  Transmission Date: 20160304
  Serious: Yes (Other)
  Sender: FDA-Public Use
  Company Number: ADR-2005-2521

PATIENT
  Sex: Male

DRUGS (1)
  1. LIORESAL [Suspect]
     Active Substance: BACLOFEN
     Indication: MUSCLE SPASTICITY
     Dosage: 120-150 MCG/DAY

REACTIONS (6)
  - Confusional state [None]
  - Mental status changes [None]
  - Hypotonia [None]
  - Hallucination [None]
  - Depression [None]
  - Somnolence [None]
